FAERS Safety Report 5671629-8 (Version None)
Quarter: 2008Q1

REPORT INFORMATION
  Report Type: 
  Country: None (occurrence: None)
  Receive Date: 20080313
  Receipt Date: 20080226
  Transmission Date: 20080703
  Serious: No
  Sender: FDA-Public Use
  Company Number: 8030307

PATIENT
  Age: 11 Year
  Sex: Male
  Weight: 50.3 kg

DRUGS (2)
  1. METHYLPHENIDATE HCL [Suspect]
     Dosage: 20 MG 1/D
     Dates: start: 20070223, end: 20070101
  2. METHYLPHENIDATE HCL [Suspect]
     Dosage: 30 MG 1/D
     Dates: start: 20070424

REACTIONS (5)
  - ANXIETY [None]
  - GASTROINTESTINAL PAIN [None]
  - ONYCHOPHAGIA [None]
  - SOCIAL AVOIDANT BEHAVIOUR [None]
  - TIC [None]
